FAERS Safety Report 10924224 (Version 1)
Quarter: 2015Q1

REPORT INFORMATION
  Report Type: Spontaneous
  Country: US (occurrence: None)
  Receive Date: 20150316
  Receipt Date: 20150316
  Transmission Date: 20150721
  Serious: Yes (Hospitalization, Congenital Anomaly)
  Sender: FDA-Public Use
  Company Number: None

PATIENT
  Age: 8 Month
  Sex: Male
  Weight: 9.98 kg

DRUGS (2)
  1. ZOFRAN [Suspect]
     Active Substance: ONDANSETRON HYDROCHLORIDE
     Indication: NAUSEA
     Dosage: 4 MF TWICE DAILY
     Route: 048
     Dates: start: 20140826, end: 20141029
  2. ZOFRAN [Suspect]
     Active Substance: ONDANSETRON HYDROCHLORIDE
     Indication: PREGNANCY
     Dosage: 4 MF TWICE DAILY
     Route: 048
     Dates: start: 20140826, end: 20141029

REACTIONS (4)
  - Lip disorder [None]
  - Pulmonary valve stenosis congenital [None]
  - Maternal drugs affecting foetus [None]
  - Congenital anomaly [None]

NARRATIVE: CASE EVENT DATE: 20150313
